FAERS Safety Report 15937167 (Version 1)
Quarter: 2019Q1

REPORT INFORMATION
  Report Type: Report from Study
  Country: US (occurrence: US)
  Receive Date: 20190208
  Receipt Date: 20190208
  Transmission Date: 20190417
  Serious: Yes (Hospitalization)
  Sender: FDA-Public Use
  Company Number: US-ASPEN-GLO2019US000996

PATIENT
  Sex: Female
  Weight: 75.01 kg

DRUGS (10)
  1. VINCRISTINE SULFATE. [Suspect]
     Active Substance: VINCRISTINE SULFATE
     Indication: B PRECURSOR TYPE ACUTE LEUKAEMIA
     Dosage: 8 MG, UNK
     Dates: start: 20180918, end: 20181111
  2. RITUXIMAB. [Suspect]
     Active Substance: RITUXIMAB
     Indication: B PRECURSOR TYPE ACUTE LEUKAEMIA
     Dosage: 1380 MG, UNK
     Route: 065
     Dates: start: 20180918, end: 20180926
  3. TIOGUANINE [Suspect]
     Active Substance: THIOGUANINE ANHYDROUS
     Indication: B PRECURSOR TYPE ACUTE LEUKAEMIA
     Dosage: 1680 MG, UNK
     Route: 065
     Dates: start: 20181024, end: 20181106
  4. DOXORUBICIN HCL [Suspect]
     Active Substance: DOXORUBICIN HYDROCHLORIDE
     Indication: B PRECURSOR TYPE ACUTE LEUKAEMIA
     Dosage: 138 MG, UNK
     Route: 065
     Dates: start: 20180918, end: 20181003
  5. CYCLOPHOSPHAMIDE. [Suspect]
     Active Substance: CYCLOPHOSPHAMIDE
     Indication: B PRECURSOR TYPE ACUTE LEUKAEMIA
     Dosage: 1860 MG, UNK
     Route: 065
     Dates: start: 20181024, end: 20181024
  6. DEXAMETHASONE. [Suspect]
     Active Substance: DEXAMETHASONE
     Indication: B PRECURSOR TYPE ACUTE LEUKAEMIA
     Dosage: 126 MG, UNK
     Route: 065
     Dates: start: 20180918, end: 20181009
  7. CYTARABINE. [Suspect]
     Active Substance: CYTARABINE
     Indication: B PRECURSOR TYPE ACUTE LEUKAEMIA
     Dosage: 1120 MG, UNK
     Dates: start: 20181024, end: 20181103
  8. INOTUZUMAB OZOGAMICIN [Suspect]
     Active Substance: INOTUZUMAB OZOGAMICIN
     Indication: B PRECURSOR TYPE ACUTE LEUKAEMIA
     Dosage: UNK
     Route: 065
     Dates: start: 20171025, end: 20171206
  9. METHOTREXATE SODIUM. [Suspect]
     Active Substance: METHOTREXATE SODIUM
     Indication: B PRECURSOR TYPE ACUTE LEUKAEMIA
     Dosage: 45 MG, UNK
     Route: 065
     Dates: start: 20180918, end: 20181031
  10. PEGASPARGASE [Suspect]
     Active Substance: PEGASPARGASE
     Indication: B PRECURSOR TYPE ACUTE LEUKAEMIA
     Dosage: 7425 UNITS, UNK
     Route: 065
     Dates: start: 20180921, end: 20181111

REACTIONS (1)
  - Infection [Unknown]

NARRATIVE: CASE EVENT DATE: 20181109
